FAERS Safety Report 9706805 (Version 2)
Quarter: 2013Q4

REPORT INFORMATION
  Report Type: Report from Study
  Country: MX (occurrence: MX)
  Receive Date: 20131125
  Receipt Date: 20131125
  Transmission Date: 20140711
  Serious: Yes (Life-Threatening)
  Sender: FDA-Public Use
  Company Number: PHHY2012MX049129

PATIENT
  Age: 56 Year
  Sex: Female

DRUGS (3)
  1. CO-DIOVAN [Suspect]
     Indication: HYPERTENSION
     Dosage: 1 DF (160 MG VALSAR AND 25 MG HYDRO), UNK
     Route: 048
     Dates: start: 201108
  2. AMLODIPINE [Suspect]
     Dosage: UNK UKN, UNK
  3. NORVAS [Concomitant]
     Dosage: 1 DF, PER DAY
     Dates: start: 201108, end: 201205

REACTIONS (4)
  - Feeling abnormal [Unknown]
  - Petechiae [Not Recovered/Not Resolved]
  - Vein disorder [Unknown]
  - Weight increased [Not Recovered/Not Resolved]
